FAERS Safety Report 7089270-1 (Version None)
Quarter: 2010Q4

REPORT INFORMATION
  Report Type: 
  Country: None (occurrence: None)
  Receive Date: 20101108
  Receipt Date: 20101101
  Transmission Date: 20110411
  Serious: Yes (Other)
  Sender: FDA-Public Use
  Company Number: JP-PFIZER INC-2010138882

PATIENT
  Age: 75 Year
  Sex: Male

DRUGS (4)
  1. VFEND [Suspect]
     Indication: BLOOD BETA-D-GLUCAN INCREASED
     Dosage: UNK
     Route: 065
     Dates: start: 20101027
  2. METHOTREXATE SODIUM [Suspect]
     Dosage: UNK
     Route: 065
     Dates: start: 20101025
  3. LEUCOVORIN CALCIUM [Suspect]
     Route: 065
  4. MEROPENEM TRIHYDRATE [Concomitant]

REACTIONS (2)
  - DIABETES INSIPIDUS [None]
  - ENDOPHTHALMITIS [None]
